FAERS Safety Report 25690331 (Version 1)
Quarter: 2025Q3

REPORT INFORMATION
  Report Type: Spontaneous
  Country: US (occurrence: None)
  Receive Date: 20250816
  Receipt Date: 20250816
  Transmission Date: 20251020
  Serious: Yes (Other)
  Sender: FDA-CTU
  Company Number: None

PATIENT
  Age: 63 Year
  Sex: Male

DRUGS (1)
  1. DICHLORPHENAMIDE [Suspect]
     Active Substance: DICHLORPHENAMIDE
     Dosage: FREQUENCY : TWICE A DAY;?

REACTIONS (4)
  - Pharyngeal swelling [None]
  - Throat irritation [None]
  - Mouth swelling [None]
  - Oral pruritus [None]
